FAERS Safety Report 9994771 (Version 4)
Quarter: 2015Q4

REPORT INFORMATION
  Report Type: Report from Study
  Country: BR (occurrence: BR)
  Receive Date: 20140311
  Receipt Date: 20151124
  Transmission Date: 20160305
  Serious: Yes (Other)
  Sender: FDA-Public Use
  Company Number: PHHY2014BR026773

PATIENT
  Sex: Female
  Weight: 63 kg

DRUGS (6)
  1. SANDOSTATIN LAR DEPOT [Suspect]
     Active Substance: OCTREOTIDE ACETATE
     Dosage: 30 MG, EVERY 28 DAYS
     Route: 030
     Dates: start: 2010
  2. SANDOSTATIN LAR DEPOT [Suspect]
     Active Substance: OCTREOTIDE ACETATE
     Dosage: 20 MG, EVERY 28 DAYS
     Route: 030
     Dates: start: 200807
  3. CABERGOLINE. [Suspect]
     Active Substance: CABERGOLINE
     Indication: ACROMEGALY
     Dosage: 4 DF, QW
     Route: 065
     Dates: start: 2010
  4. SANDOSTATIN LAR DEPOT [Suspect]
     Active Substance: OCTREOTIDE ACETATE
     Indication: ACROMEGALY
     Dosage: 10 MG, EVERY 28 DAYS
     Route: 030
     Dates: start: 2008
  5. SANDOSTATIN LAR DEPOT [Suspect]
     Active Substance: OCTREOTIDE ACETATE
     Dosage: 40 MG (2 AMPOULES OF 20 MG AND 1 AMPOULE OF 30 MG WITH 1 AMPOULE OF 10 MG), EVERY 28 DAYS
     Route: 030
  6. CABERGOLINE. [Suspect]
     Active Substance: CABERGOLINE
     Dosage: 6 DF, QW
     Route: 065

REACTIONS (18)
  - Diabetes mellitus [Unknown]
  - Hepatic pain [Unknown]
  - Nervousness [Unknown]
  - Injection site induration [Recovering/Resolving]
  - Menorrhagia [Recovering/Resolving]
  - Arthralgia [Recovering/Resolving]
  - Musculoskeletal pain [Unknown]
  - Insulin-like growth factor increased [Unknown]
  - Drug ineffective [Recovering/Resolving]
  - Bone pain [Unknown]
  - Neck pain [Recovering/Resolving]
  - Blood growth hormone abnormal [Unknown]
  - Toothache [Unknown]
  - Sleep disorder [Unknown]
  - Leiomyoma [Recovering/Resolving]
  - Eye pain [Unknown]
  - Carpal tunnel syndrome [Unknown]
  - Pain in extremity [Unknown]

NARRATIVE: CASE EVENT DATE: 2010
